FAERS Safety Report 11813354 (Version 1)
Quarter: 2015Q4

REPORT INFORMATION
  Report Type: Spontaneous
  Country: US (occurrence: None)
  Receive Date: 20151208
  Receipt Date: 20151208
  Transmission Date: 20160305
  Serious: No
  Sender: FDA-Public Use
  Company Number: None

PATIENT
  Age: 74 Year
  Sex: Female
  Weight: 60.9 kg

DRUGS (14)
  1. ASPIRIN (ECOTRIJ LOW STRENGTH) [Concomitant]
  2. ST. JOHN^S WORT (CENTRUM HERBALS ST JOHNS WORT) [Concomitant]
  3. LISINOPRIL (PRINIVIL/ZESTRIL) [Concomitant]
  4. OMEPRAZOLE (PRILOSEC) [Concomitant]
  5. FOSAMAX [Concomitant]
     Active Substance: ALENDRONATE SODIUM
  6. DRONABINOL (IMARINOL) [Concomitant]
  7. AMPYRA [Suspect]
     Active Substance: DALFAMPRIDINE
     Indication: MULTIPLE SCLEROSIS
     Route: 048
     Dates: start: 201006
  8. NORVASC [Concomitant]
     Active Substance: AMLODIPINE BESYLATE
  9. MODAFINIL (PROVIGIL) [Concomitant]
  10. LIPITOR [Concomitant]
     Active Substance: ATORVASTATIN CALCIUM
  11. FERROUS SULFATE [Concomitant]
     Active Substance: FERROUS SULFATE\FERROUS SULFATE, DRIED
  12. LASIX [Concomitant]
     Active Substance: FUROSEMIDE
  13. POTASSIUM CHLORIDE (KLOR-CON M20) [Concomitant]
  14. TEGRETOL [Concomitant]
     Active Substance: CARBAMAZEPINE

REACTIONS (2)
  - Dizziness [None]
  - Insomnia [None]

NARRATIVE: CASE EVENT DATE: 20150825
